FAERS Safety Report 5634920-7 (Version None)
Quarter: 2008Q1

REPORT INFORMATION
  Report Type: 
  Country: None (occurrence: None)
  Receive Date: 20080131
  Receipt Date: 20071127
  Transmission Date: 20080703
  Serious: No
  Sender: FDA-Public Use
  Company Number: 2007-US-000268

PATIENT
  Age: 10 Year
  Sex: Female
  Weight: 22.7 kg

DRUGS (2)
  1. INCRELEX [Suspect]
     Indication: BODY HEIGHT BELOW NORMAL
     Dosage: 9, 18  UT, BID, SUBCUTANEOUS
     Route: 058
     Dates: start: 20070830, end: 20070915
  2. INCRELEX [Suspect]
     Indication: BODY HEIGHT BELOW NORMAL
     Dosage: 9, 18  UT, BID, SUBCUTANEOUS
     Route: 058
     Dates: start: 20070916, end: 20071106

REACTIONS (1)
  - INJECTION SITE MASS [None]
